FAERS Safety Report 15789996 (Version 1)
Quarter: 2019Q1

REPORT INFORMATION
  Report Type: Spontaneous
  Country: US (occurrence: US)
  Receive Date: 20190104
  Receipt Date: 20190104
  Transmission Date: 20190417
  Serious: Yes (Death)
  Sender: FDA-Public Use
  Company Number: US-PFIZER INC-2019000362

PATIENT
  Age: 72 Year
  Sex: Female
  Weight: 78.91 kg

DRUGS (2)
  1. AROMASIN [Suspect]
     Active Substance: EXEMESTANE
     Indication: BREAST CANCER FEMALE
     Dosage: 25 MG, 1X/DAY
     Route: 048
     Dates: start: 20180927
  2. IBRANCE [Suspect]
     Active Substance: PALBOCICLIB
     Dosage: 125 MG, CYCLIC (ONCE DAILY FOR 21 DAYS ON AND 7 DAYS OFF)
     Dates: start: 20180201, end: 20180601

REACTIONS (3)
  - Gait disturbance [Unknown]
  - Neoplasm progression [Fatal]
  - Asthenia [Unknown]
